FAERS Safety Report 21963015 (Version 5)
Quarter: 2023Q2

REPORT INFORMATION
  Report Type: Spontaneous
  Country: US (occurrence: US)
  Receive Date: 20230207
  Receipt Date: 20230629
  Transmission Date: 20230722
  Serious: No
  Sender: FDA-Public Use
  Company Number: US-Blueprint Medicines Corporation-795

PATIENT
  Age: 50 Year
  Sex: Female

DRUGS (2)
  1. AYVAKIT [Suspect]
     Active Substance: AVAPRITINIB
     Indication: Systemic mastocytosis
     Route: 065
     Dates: start: 20230101
  2. AYVAKIT [Suspect]
     Active Substance: AVAPRITINIB
     Route: 065
     Dates: start: 20230101

REACTIONS (17)
  - Gingival bleeding [Unknown]
  - Abdominal distension [Unknown]
  - Dysphonia [Unknown]
  - Platelet count increased [Unknown]
  - Depressed mood [Unknown]
  - Eye swelling [Unknown]
  - Eye pruritus [Unknown]
  - Ocular hyperaemia [Unknown]
  - Platelet count decreased [Unknown]
  - Fatigue [Recovering/Resolving]
  - Swelling [Unknown]
  - Nausea [Unknown]
  - Decreased appetite [Unknown]
  - White blood cell count decreased [Unknown]
  - Swelling face [Unknown]
  - Hepatic enzyme increased [Unknown]
  - Hepatic mass [Unknown]

NARRATIVE: CASE EVENT DATE: 20230216
